FAERS Safety Report 4394039-2 (Version None)
Quarter: 2004Q3

REPORT INFORMATION
  Report Type: 
  Country: None (occurrence: None)
  Receive Date: 20040707
  Receipt Date: 20040623
  Transmission Date: 20050211
  Serious: Yes (Hospitalization)
  Sender: FDA-Public Use
  Company Number: PANC00304002109

PATIENT
  Age: 30 Year
  Sex: Female
  Weight: 45 kg

DRUGS (10)
  1. CREON [Suspect]
     Indication: PANCREATITIS CHRONIC
     Dosage: 3 G DAILY PO
     Route: 048
     Dates: start: 19970127, end: 19980125
  2. DEPAKENE [Concomitant]
  3. TOFRANIL [Concomitant]
  4. DEPAS (ETIZOLAM) [Concomitant]
  5. AMOBAN (ZOPICLONE) [Concomitant]
  6. MEILAX (ETHYL LOFLAZEPATE) [Concomitant]
  7. LENDORM [Concomitant]
  8. ALOSENN [Concomitant]
  9. GASCON (DIMETICONE) [Concomitant]
  10. ZANTAC [Concomitant]

REACTIONS (2)
  - CONDITION AGGRAVATED [None]
  - PANCREATITIS CHRONIC [None]
